FAERS Safety Report 5021487-X (Version None)
Quarter: 2006Q2

REPORT INFORMATION
  Report Type: 
  Country: None (occurrence: None)
  Receive Date: 20060605
  Receipt Date: 20060523
  Transmission Date: 20061013
  Serious: Yes (Other)
  Sender: FDA-Public Use
  Company Number: 225547

PATIENT
  Age: 59 Year
  Sex: Female

DRUGS (2)
  1. AVASTIN [Suspect]
     Indication: BREAST CANCER METASTATIC
     Dosage: 100 MG/KG, Q2W
  2. TAXOL [Concomitant]
     Indication: BREAST CANCER METASTATIC

REACTIONS (3)
  - ERYTHEMA [None]
  - ERYTHEMA INDURATUM [None]
  - INFUSION RELATED REACTION [None]
